FAERS Safety Report 23248130 (Version 1)
Quarter: 2023Q4

REPORT INFORMATION
  Report Type: Spontaneous
  Country: CN (occurrence: CN)
  Receive Date: 20231130
  Receipt Date: 20231130
  Transmission Date: 20240110
  Serious: Yes (Hospitalization, Other)
  Sender: FDA-Public Use
  Company Number: CN-BAYER-2023A170071

PATIENT
  Age: 72 Year
  Sex: Male
  Weight: 66.9 kg

DRUGS (4)
  1. XARELTO [Suspect]
     Active Substance: RIVAROXABAN
     Indication: Anticoagulant therapy
     Dosage: 15 MG, QD
     Route: 048
     Dates: start: 20210701, end: 20220622
  2. XARELTO [Suspect]
     Active Substance: RIVAROXABAN
     Dosage: 15 MG, QD
     Route: 048
     Dates: start: 20220623, end: 20231106
  3. DONEPEZIL HYDROCHLORIDE [Concomitant]
     Active Substance: DONEPEZIL HYDROCHLORIDE
     Dosage: 5 MG, QD
     Route: 048
     Dates: start: 20230615, end: 20231114
  4. RABEPRAZOLE SODIUM [Concomitant]
     Active Substance: RABEPRAZOLE SODIUM
     Dosage: 20 MG, QD
     Route: 048
     Dates: start: 20210701

REACTIONS (14)
  - Chest discomfort [Unknown]
  - Dyspnoea [Unknown]
  - Blood loss anaemia [Recovering/Resolving]
  - Chronic gastrointestinal bleeding [Recovered/Resolved]
  - Melaena [Recovered/Resolved]
  - Pallor [Recovering/Resolving]
  - Conjunctival pallor [Recovering/Resolving]
  - Haemoglobin decreased [Not Recovered/Not Resolved]
  - Prothrombin time prolonged [Unknown]
  - Cardiomegaly [Unknown]
  - Cardiac disorder [Unknown]
  - Nasopharyngitis [Unknown]
  - Product prescribing issue [Unknown]
  - Incorrect dose administered [Unknown]

NARRATIVE: CASE EVENT DATE: 20210701
